FAERS Safety Report 25089682 (Version 1)
Quarter: 2025Q1

REPORT INFORMATION
  Report Type: Spontaneous
  Country: US (occurrence: US)
  Receive Date: 20250318
  Receipt Date: 20250318
  Transmission Date: 20250408
  Serious: No
  Sender: ALEXION PHARMACEUTICALS
  Company Number: US-AstraZeneca-CH-00827506AP

PATIENT

DRUGS (1)
  1. SYMBICORT [Suspect]
     Active Substance: BUDESONIDE\FORMOTEROL FUMARATE DIHYDRATE
     Dosage: UNK UNK, BID
     Route: 065

REACTIONS (6)
  - Tremor [Unknown]
  - Device use issue [Unknown]
  - Device malfunction [Unknown]
  - Product dose omission issue [Unknown]
  - Productive cough [Unknown]
  - Product after taste [Unknown]
